FAERS Safety Report 12890764 (Version 2)
Quarter: 2016Q4

REPORT INFORMATION
  Report Type: Report from Study
  Country: US (occurrence: US)
  Receive Date: 20161027
  Receipt Date: 20161230
  Transmission Date: 20170207
  Serious: Yes (Hospitalization)
  Sender: FDA-Public Use
  Company Number: US-SAOL THERAPEUTICS-2016SAO00925

PATIENT
  Age: 74 Year
  Sex: Female

DRUGS (6)
  1. DILAUDID [Suspect]
     Active Substance: HYDROMORPHONE HYDROCHLORIDE
     Dosage: 149.88 ?G, \DAY
     Route: 037
     Dates: start: 20161014
  2. BUPIVACAINE. [Suspect]
     Active Substance: BUPIVACAINE
     Dosage: 8.010 MG, \DAY
     Route: 037
     Dates: start: 20161013, end: 20161014
  3. DILAUDID [Suspect]
     Active Substance: HYDROMORPHONE HYDROCHLORIDE
     Dosage: 200.26 ?G, \DAY
     Route: 037
     Dates: start: 20161013, end: 20161014
  4. BUPIVACAINE. [Suspect]
     Active Substance: BUPIVACAINE
     Dosage: 5.995 MG, \DAY
     Route: 037
     Dates: start: 20161014
  5. COMPOUNDED BACLOFEN [Suspect]
     Active Substance: BACLOFEN
     Dosage: 69.94 ?G, \DAY
     Route: 037
     Dates: start: 20161014
  6. COMPOUNDED BACLOFEN [Suspect]
     Active Substance: BACLOFEN
     Dosage: 93.46 ?G, \DAY
     Route: 037
     Dates: start: 20151013, end: 20161014

REACTIONS (1)
  - Unresponsive to stimuli [Recovered/Resolved]

NARRATIVE: CASE EVENT DATE: 20151028
